FAERS Safety Report 5331843-8 (Version None)
Quarter: 2007Q2

REPORT INFORMATION
  Report Type: 
  Country: None (occurrence: None)
  Receive Date: 20070523
  Receipt Date: 20070511
  Transmission Date: 20071010
  Serious: Yes (Other)
  Sender: FDA-Public Use
  Company Number: PHBS2007BR08154

PATIENT
  Age: 52 Year
  Sex: Female
  Weight: 100 kg

DRUGS (3)
  1. HIGROTON [Suspect]
     Indication: HYPERTENSION
     Dosage: 25 MG, BID
     Route: 048
  2. TRILEPTAL [Suspect]
     Indication: ANXIETY
     Dosage: 1  TABLET/DAY
     Route: 048
  3. TRILEPTAL [Suspect]
     Dosage: 1 TABLET, Q12H
     Route: 048

REACTIONS (4)
  - ANXIETY [None]
  - DEPRESSED MOOD [None]
  - DEPRESSION [None]
  - MOOD ALTERED [None]
